FAERS Safety Report 24361779 (Version 1)
Quarter: 2024Q3

REPORT INFORMATION
  Report Type: Spontaneous
  Country: US (occurrence: None)
  Receive Date: 20240924
  Receipt Date: 20240924
  Transmission Date: 20241016
  Serious: Yes (Hospitalization)
  Sender: Public
  Company Number: None

PATIENT
  Age: 35 Year
  Sex: Female

DRUGS (3)
  1. OPSUMIT [Suspect]
     Active Substance: MACITENTAN
     Indication: Pulmonary arterial hypertension
     Dosage: FREQUENCY : DAILY;?
     Route: 048
     Dates: start: 201607
  2. SILDENAFIL CITRATE [Concomitant]
  3. UPTRAVI [Concomitant]

REACTIONS (2)
  - Blood iron decreased [None]
  - Transfusion [None]

NARRATIVE: CASE EVENT DATE: 20240905
